FAERS Safety Report 25755127 (Version 1)
Quarter: 2025Q3

REPORT INFORMATION
  Report Type: Report from Study
  Country: US (occurrence: US)
  Receive Date: 20250903
  Receipt Date: 20250903
  Transmission Date: 20251020
  Serious: Yes (Other)
  Sender: ABBVIE
  Company Number: US-ABBVIE-6437290

PATIENT
  Age: 63 Year
  Sex: Female

DRUGS (1)
  1. RINVOQ [Suspect]
     Active Substance: UPADACITINIB
     Indication: Rheumatoid arthritis
     Route: 048
     Dates: start: 20230915

REACTIONS (7)
  - Intestinal polyp [Recovered/Resolved]
  - Vision blurred [Not Recovered/Not Resolved]
  - Intestinal polyp [Not Recovered/Not Resolved]
  - Herpes zoster [Recovered/Resolved]
  - Skin hypertrophy [Unknown]
  - Gastrointestinal disorder [Unknown]
  - Multiple allergies [Unknown]

NARRATIVE: CASE EVENT DATE: 20250301
